FAERS Safety Report 8418130-6 (Version None)
Quarter: 2012Q2

REPORT INFORMATION
  Report Type: 
  Country: None (occurrence: None)
  Receive Date: 20120604
  Receipt Date: 20120604
  Transmission Date: 20120825
  Serious: Yes (Hospitalization, Disabling)
  Sender: FDA-Public Use
  Company Number: None

PATIENT
  Age: 48 Year
  Sex: Female
  Weight: 81.6475 kg

DRUGS (1)
  1. CYMBALTA [Suspect]
     Indication: CRANIOCEREBRAL INJURY
     Dosage: 60MG DAILY PO
     Route: 048

REACTIONS (20)
  - STOMATITIS [None]
  - URTICARIA [None]
  - AGGRESSION [None]
  - MALAISE [None]
  - TREMOR [None]
  - IMPAIRED DRIVING ABILITY [None]
  - GENERALISED OEDEMA [None]
  - PYREXIA [None]
  - ASTHENIA [None]
  - ARTHRALGIA [None]
  - ANXIETY [None]
  - DECREASED APPETITE [None]
  - WEIGHT DECREASED [None]
  - MOLLUSCUM CONTAGIOSUM [None]
  - NAUSEA [None]
  - ABDOMINAL PAIN [None]
  - VICTIM OF SEXUAL ABUSE [None]
  - FEELING HOT [None]
  - HYPERHIDROSIS [None]
  - SCAR [None]
